FAERS Safety Report 4871915-5 (Version None)
Quarter: 2005Q4

REPORT INFORMATION
  Report Type: 
  Country: None (occurrence: None)
  Receive Date: 20051230
  Receipt Date: 20051219
  Transmission Date: 20060501
  Serious: Yes (Other)
  Sender: FDA-Public Use
  Company Number: 2005171144

PATIENT
  Age: 13 Year
  Sex: Male
  Weight: 30 kg

DRUGS (2)
  1. GENOTROPIN [Suspect]
     Indication: GROWTH HORMONE DEFICIENCY
     Dates: start: 19980101, end: 20010101
  2. SUSTANON (TESTOSTERONE CAPRINOLYACETATE, TESTOSTERONE ISOCAPROATE, TES [Suspect]
     Indication: GROWTH HORMONE DEFICIENCY
     Dosage: 500 MCG 1 IN 15 D INTRAMUSCULAR
     Route: 030
     Dates: start: 20051105, end: 20051219

REACTIONS (2)
  - PAIN [None]
  - SWELLING [None]
